FAERS Safety Report 19627263 (Version 1)
Quarter: 2021Q3

REPORT INFORMATION
  Report Type: Spontaneous
  Country: US (occurrence: US)
  Receive Date: 20210729
  Receipt Date: 20210729
  Transmission Date: 20211014
  Serious: No
  Sender: FDA-Public Use
  Company Number: US-GLENMARK PHARMACEUTICALS-2021GMK066641

PATIENT

DRUGS (2)
  1. HYDROCORTISONE VALERATE CREAM USP, 0.2% [Suspect]
     Active Substance: HYDROCORTISONE VALERATE
     Indication: PRURITUS
     Dosage: UNK
     Route: 061
     Dates: start: 20210703
  2. HYDROCORTISONE VALERATE CREAM USP, 0.2% [Suspect]
     Active Substance: HYDROCORTISONE VALERATE
     Indication: EXPOSURE TO TOXIC AGENT

REACTIONS (3)
  - Nausea [Not Recovered/Not Resolved]
  - Dizziness [Not Recovered/Not Resolved]
  - Product use in unapproved indication [Unknown]

NARRATIVE: CASE EVENT DATE: 20210706
